FAERS Safety Report 9444600 (Version 2)
Quarter: 2013Q3

REPORT INFORMATION
  Report Type: Spontaneous
  Country: US (occurrence: US)
  Receive Date: 20130807
  Receipt Date: 20130816
  Transmission Date: 20140515
  Serious: No
  Sender: FDA-Public Use
  Company Number: US-PFIZER INC-2013228268

PATIENT
  Age: 45 Year
  Sex: Female
  Weight: 79.37 kg

DRUGS (3)
  1. LYRICA [Suspect]
     Indication: FIBROMYALGIA
     Dosage: 150 MG, 2X/DAY
     Route: 048
  2. METHADONE [Concomitant]
     Indication: PAIN
     Dosage: UNK
  3. OXYCODONE [Concomitant]
     Dosage: UNK

REACTIONS (4)
  - Intentional drug misuse [Unknown]
  - Pain [Unknown]
  - Irritability [Unknown]
  - Feeling abnormal [Unknown]
